FAERS Safety Report 11660710 (Version 1)
Quarter: 2015Q4

REPORT INFORMATION
  Report Type: Spontaneous
  Country: US (occurrence: US)
  Receive Date: 20151026
  Receipt Date: 20151026
  Transmission Date: 20160304
  Serious: No
  Sender: FDA-Public Use
  Company Number: US-MEDA-2011070106

PATIENT
  Age: 63 Year
  Sex: Male
  Weight: 109 kg

DRUGS (3)
  1. NASONEX [Concomitant]
     Active Substance: MOMETASONE FUROATE
     Indication: MIDDLE EAR EFFUSION
     Dosage: 2 SPRAYS PER NOSTRIL
  2. ASTEPRO [Suspect]
     Active Substance: AZELASTINE HYDROCHLORIDE
     Indication: MIDDLE EAR EFFUSION
     Route: 045
     Dates: start: 20110712
  3. CLARINEX [Concomitant]
     Active Substance: DESLORATADINE
     Indication: MIDDLE EAR EFFUSION
     Route: 048

REACTIONS (1)
  - Somnolence [Not Recovered/Not Resolved]

NARRATIVE: CASE EVENT DATE: 20110712
